FAERS Safety Report 25281669 (Version 5)
Quarter: 2025Q3

REPORT INFORMATION
  Report Type: Report from Study
  Country: EU (occurrence: EU)
  Receive Date: 20250508
  Receipt Date: 20250811
  Transmission Date: 20251021
  Serious: Yes (Other)
  Sender: NOVARTIS
  Company Number: EU-002147023-NVSC2025IT074162

PATIENT
  Age: 41 Year
  Sex: Female

DRUGS (1)
  1. KESIMPTA [Suspect]
     Active Substance: OFATUMUMAB
     Indication: Multiple sclerosis
     Route: 058
     Dates: start: 20250401

REACTIONS (6)
  - Hyperpyrexia [Recovered/Resolved]
  - Vomiting [Recovered/Resolved]
  - Pyrexia [Recovered/Resolved]
  - Pyrexia [Recovered/Resolved]
  - Pyrexia [Recovered/Resolved]
  - Rhinitis [Not Recovered/Not Resolved]

NARRATIVE: CASE EVENT DATE: 20250401
